FAERS Safety Report 5028046-3 (Version None)
Quarter: 2006Q2

REPORT INFORMATION
  Report Type: 
  Country: None (occurrence: None)
  Receive Date: 20060613
  Receipt Date: 20060602
  Transmission Date: 20061013
  Serious: Yes (Hospitalization, Other)
  Sender: FDA-Public Use
  Company Number: 2006-05-1704

PATIENT
  Age: 54 Year
  Sex: Male
  Weight: 94.3482 kg

DRUGS (12)
  1. PEG-INTRON [Suspect]
     Indication: HEPATITIS C
     Dosage: 150 MCG SUBCUTANEOUS
     Route: 058
     Dates: start: 20050823, end: 20060509
  2. RIBAVIRIN [Suspect]
     Indication: HEPATITIS C
     Dosage: 800 MG,  ORAL
     Route: 048
     Dates: start: 20050823, end: 20060509
  3. ASPIRIN [Suspect]
     Dates: end: 20060515
  4. NAPROXEN [Suspect]
     Dates: end: 20060515
  5. NORVASC [Concomitant]
  6. COREG [Concomitant]
  7. ALTACE [Concomitant]
  8. DIGOXIN [Concomitant]
  9. NIACIN [Concomitant]
  10. LASIX [Concomitant]
  11. MULTIVITAMIN [Concomitant]
  12. VIAGRA [Concomitant]

REACTIONS (9)
  - ANAEMIA [None]
  - ARTHRALGIA [None]
  - DUODENAL ULCER [None]
  - FATIGUE [None]
  - GASTRITIS [None]
  - MYALGIA [None]
  - OTORRHOEA [None]
  - SINUS CONGESTION [None]
  - ULCER HAEMORRHAGE [None]
